FAERS Safety Report 5733238-1 (Version None)
Quarter: 2008Q2

REPORT INFORMATION
  Report Type: 
  Country: None (occurrence: None)
  Receive Date: 20080509
  Receipt Date: 20080428
  Transmission Date: 20081010
  Serious: Yes (Other)
  Sender: FDA-Public Use
  Company Number: HQWYE219631AUG05

PATIENT
  Sex: Female

DRUGS (7)
  1. PREMARIN [Suspect]
     Indication: HORMONE REPLACEMENT THERAPY
  2. PROMETRIUM [Suspect]
  3. ESTRATEST [Suspect]
  4. VAGIFEM [Suspect]
  5. ESTROGENS CONJUGATED [Suspect]
  6. SYNTHETIC CONJUGATED ESTROGENS A [Suspect]
  7. ESTRING [Suspect]

REACTIONS (1)
  - BREAST CANCER RECURRENT [None]
